FAERS Safety Report 12506557 (Version 1)
Quarter: 2016Q2

REPORT INFORMATION
  Report Type: Report from Study
  Country: US (occurrence: US)
  Receive Date: 20160628
  Receipt Date: 20160628
  Transmission Date: 20160815
  Serious: Yes (Other)
  Sender: FDA-Public Use
  Company Number: US-BMSGILMSD-2016-0220325

PATIENT
  Sex: Male

DRUGS (1)
  1. EFAVIRENZ/EMTRICITABINE/TENOFOVIR DISOPROXIL FUMARATE [Suspect]
     Active Substance: EFAVIRENZ\EMTRICITABINE\TENOFOVIR DISOPROXIL FUMARATE
     Indication: HIV INFECTION
     Dosage: 1100 MG, UNK
     Route: 048
     Dates: start: 19950106

REACTIONS (7)
  - Neuropathy peripheral [Unknown]
  - T-lymphocyte count decreased [Unknown]
  - Hepatic cirrhosis [Unknown]
  - Splenomegaly [Unknown]
  - Arthralgia [Unknown]
  - Liver disorder [Unknown]
  - Ascites [Unknown]
